FAERS Safety Report 7150855-5 (Version None)
Quarter: 2010Q4

REPORT INFORMATION
  Report Type: 
  Country: None (occurrence: None)
  Receive Date: 20101210
  Receipt Date: 20101202
  Transmission Date: 20110411
  Serious: Yes (Other)
  Sender: FDA-Public Use
  Company Number: IT-ABBOTT-10P-083-0689959-00

PATIENT
  Sex: Male

DRUGS (1)
  1. MACLADIN [Suspect]
     Indication: EPIDIDYMO-ORCHITIS GONOCOCCAL
     Route: 048
     Dates: start: 20101127, end: 20101128

REACTIONS (3)
  - BRONCHOSPASM [None]
  - SUFFOCATION FEELING [None]
  - URTICARIA [None]
